FAERS Safety Report 6389143-3 (Version None)
Quarter: 2009Q4

REPORT INFORMATION
  Report Type: 
  Country: None (occurrence: None)
  Receive Date: 20091006
  Receipt Date: 20090925
  Transmission Date: 20100525
  Serious: Yes (Hospitalization)
  Sender: FDA-Public Use
  Company Number: US-CELGENEUS-163-20785-09090269

PATIENT
  Sex: Male

DRUGS (1)
  1. THALOMID [Suspect]
     Route: 048
     Dates: start: 20090401

REACTIONS (1)
  - COLON CANCER [None]
